FAERS Safety Report 8134193-X (Version None)
Quarter: 2012Q1

REPORT INFORMATION
  Report Type: 
  Country: None (occurrence: None)
  Receive Date: 20120130
  Receipt Date: 20120116
  Transmission Date: 20120608
  Serious: No
  Sender: FDA-Public Use
  Company Number: US-145276

PATIENT
  Sex: Female

DRUGS (4)
  1. BENADRYL [Concomitant]
  2. ACETAMINOPHEN [Concomitant]
  3. WINRHO SDF [Suspect]
     Dosage: (7500 UG TOTAL INTRAVENOUS (NOT OTHERWISE SPECIFIED))
     Route: 042
  4. HYDROCORTISONE [Concomitant]

REACTIONS (5)
  - NAUSEA [None]
  - HAEMOLYSIS [None]
  - HEADACHE [None]
  - PYREXIA [None]
  - CHILLS [None]
